FAERS Safety Report 9376198 (Version 2)
Quarter: 2013Q3

REPORT INFORMATION
  Report Type: Report from Study
  Country: US (occurrence: US)
  Receive Date: 20130701
  Receipt Date: 20130702
  Transmission Date: 20140515
  Serious: Yes (Hospitalization)
  Sender: FDA-Public Use
  Company Number: US-ROCHE-1241774

PATIENT
  Age: 19 Year
  Sex: Male
  Weight: 57.3 kg

DRUGS (4)
  1. CELLCEPT [Suspect]
     Indication: RENAL TRANSPLANT
     Route: 048
     Dates: start: 201102
  2. PROGRAF [Concomitant]
     Indication: TRANSPLANT REJECTION
     Route: 048
     Dates: start: 201102
  3. PREDNISONE [Concomitant]
     Indication: TRANSPLANT REJECTION
     Route: 048
     Dates: start: 201102
  4. AMLODIPINE [Concomitant]
     Indication: HYPERTENSION
     Route: 048

REACTIONS (1)
  - Kidney transplant rejection [Recovering/Resolving]
